FAERS Safety Report 7314381-2 (Version None)
Quarter: 2011Q1

REPORT INFORMATION
  Report Type: 
  Country: None (occurrence: None)
  Receive Date: 20110225
  Receipt Date: 20100805
  Transmission Date: 20110831
  Serious: No
  Sender: FDA-Public Use
  Company Number: US-MYLANLABS-2010S1014258

PATIENT
  Sex: Female

DRUGS (9)
  1. AMNESTEEM [Suspect]
     Route: 048
     Dates: start: 20100426, end: 20100501
  2. AMNESTEEM [Suspect]
     Route: 048
     Dates: start: 20100501, end: 20100701
  3. AMNESTEEM [Suspect]
     Route: 048
     Dates: start: 20100501, end: 20100701
  4. AMNESTEEM [Suspect]
     Route: 048
     Dates: start: 20100218
  5. AMNESTEEM [Suspect]
     Route: 048
     Dates: start: 20100426, end: 20100501
  6. TOPAMAX [Concomitant]
  7. AMNESTEEM [Suspect]
     Indication: ACNE
     Route: 048
     Dates: start: 20100218
  8. PHENYTEK [Concomitant]
  9. LAMICTAL [Concomitant]

REACTIONS (1)
  - MOOD SWINGS [None]
